FAERS Safety Report 7658626-8 (Version None)
Quarter: 2011Q3

REPORT INFORMATION
  Report Type: 
  Country: None (occurrence: None)
  Receive Date: 20110805
  Receipt Date: 20110802
  Transmission Date: 20111222
  Serious: Yes (Hospitalization, Other)
  Sender: FDA-Public Use
  Company Number: US-BRISTOL-MYERS SQUIBB COMPANY-15941792

PATIENT
  Age: 16 Year
  Sex: Male
  Weight: 61 kg

DRUGS (2)
  1. ABILIFY [Suspect]
     Indication: BIPOLAR DISORDER
     Dosage: DOSE INCREASED TO 25MG DOSAGE:15MG
  2. ABILIFY [Suspect]
     Indication: SCHIZOAFFECTIVE DISORDER
     Dosage: DOSE INCREASED TO 25MG DOSAGE:15MG

REACTIONS (8)
  - SUICIDE ATTEMPT [None]
  - LYMPHADENOPATHY [None]
  - DYSPNOEA [None]
  - INSOMNIA [None]
  - CHEST PAIN [None]
  - IRRITABILITY [None]
  - BACK PAIN [None]
  - ABDOMINAL DISCOMFORT [None]
